FAERS Safety Report 5875948-1 (Version None)
Quarter: 2008Q3

REPORT INFORMATION
  Report Type: 
  Country: None (occurrence: None)
  Receive Date: 20080905
  Receipt Date: 20080204
  Transmission Date: 20090109
  Serious: Yes (Life-Threatening)
  Sender: FDA-Public Use
  Company Number: 2008S1011911

PATIENT
  Age: 38 Year
  Sex: Female

DRUGS (5)
  1. AMLODIPINE [Suspect]
     Indication: DRUG USE FOR UNKNOWN INDICATION
     Dosage: 5 MG, 10 MG
     Dates: start: 20050609, end: 20050811
  2. AMLODIPINE [Suspect]
     Indication: DRUG USE FOR UNKNOWN INDICATION
     Dosage: 5 MG, 10 MG
     Dates: start: 20050811, end: 20080118
  3. BENDROFLUMETHIAZIDE [Concomitant]
  4. CODEINE PHOSPHATE [Concomitant]
  5. VALSARTAN [Concomitant]

REACTIONS (2)
  - ELECTROCARDIOGRAM QT PROLONGED [None]
  - VENTRICULAR EXTRASYSTOLES [None]
